FAERS Safety Report 6035887-2 (Version None)
Quarter: 2009Q1

REPORT INFORMATION
  Report Type: 
  Country: None (occurrence: None)
  Receive Date: 20090113
  Receipt Date: 20090109
  Transmission Date: 20090719
  Serious: Yes (Hospitalization)
  Sender: FDA-Public Use
  Company Number: A0718165A

PATIENT
  Age: 65 Year
  Sex: Female
  Weight: 136.4 kg

DRUGS (6)
  1. AVANDIA [Suspect]
     Dosage: 4MG PER DAY
     Route: 048
     Dates: start: 20000101, end: 20031201
  2. AVANDAMET [Suspect]
     Route: 048
     Dates: start: 20031201, end: 20070526
  3. GLUCOPHAGE [Concomitant]
  4. LEVOTHYROXINE SODIUM [Concomitant]
  5. HYZAAR [Concomitant]
  6. GLUCOPHAGE [Concomitant]

REACTIONS (2)
  - CARDIAC FAILURE CONGESTIVE [None]
  - HEART INJURY [None]
